FAERS Safety Report 6010549-6 (Version None)
Quarter: 2008Q4

REPORT INFORMATION
  Report Type: 
  Country: None (occurrence: None)
  Receive Date: 20081217
  Receipt Date: 20081217
  Transmission Date: 20090506
  Serious: No
  Sender: FDA-Public Use
  Company Number: None

PATIENT
  Sex: Male
  Weight: 76.2043 kg

DRUGS (1)
  1. RISPERIDONE [Suspect]
     Indication: SCHIZOPHRENIA
     Dosage: 2MG HS PO
     Route: 048
     Dates: start: 20081101, end: 20081201

REACTIONS (4)
  - HALLUCINATION, AUDITORY [None]
  - IRRITABILITY [None]
  - PARANOIA [None]
  - PRODUCT QUALITY ISSUE [None]
